FAERS Safety Report 9765765 (Version 1)
Quarter: 2013Q4

REPORT INFORMATION
  Report Type: Spontaneous
  Country: US (occurrence: US)
  Receive Date: 20131217
  Receipt Date: 20131217
  Transmission Date: 20140711
  Serious: No
  Sender: FDA-Public Use
  Company Number: US-GLAXOSMITHKLINE-A1011246A

PATIENT
  Age: 54 Year
  Sex: Male
  Weight: 104.5 kg

DRUGS (8)
  1. VOTRIENT [Suspect]
     Indication: RENAL CANCER
     Dosage: 800MG PER DAY
     Route: 048
  2. CLARITIN D [Concomitant]
     Route: 048
  3. LEVOTHYROXIN [Concomitant]
     Route: 048
  4. BENAZEPRIL [Concomitant]
     Route: 048
  5. GAS X [Concomitant]
  6. PRO-AIR [Concomitant]
  7. STOOL SOFTENER [Concomitant]
  8. POLYETHYLENE GLYCOL [Concomitant]

REACTIONS (16)
  - Diarrhoea [Not Recovered/Not Resolved]
  - Hair colour changes [Unknown]
  - Dizziness [Unknown]
  - Dizziness postural [Unknown]
  - Appetite disorder [Unknown]
  - Abdominal pain [Unknown]
  - Weight decreased [Unknown]
  - Thyroid function test abnormal [Unknown]
  - Disease recurrence [Unknown]
  - Red blood cell count decreased [Unknown]
  - Anaemia [Unknown]
  - Asthenia [Unknown]
  - Headache [Unknown]
  - Respiratory tract congestion [Unknown]
  - Productive cough [Unknown]
  - Sputum discoloured [Unknown]
